FAERS Safety Report 4540212-X (Version None)
Quarter: 2004Q4

REPORT INFORMATION
  Report Type: 
  Country: None (occurrence: None)
  Receive Date: 20041222
  Receipt Date: 20041206
  Transmission Date: 20050328
  Serious: Yes (Hospitalization)
  Sender: FDA-Public Use
  Company Number: FR_041205368

PATIENT
  Age: 54 Year
  Sex: Male
  Weight: 68 kg

DRUGS (4)
  1. VANCOCINE-IV (VANCOMYCIN) (VANCOMYCIN HYDROCHLORIDE [Suspect]
     Indication: LOCALISED OSTEOARTHRITIS
     Dosage: 2.5 G DAY
     Dates: start: 20040923, end: 20041112
  2. RIFAMPICIN [Concomitant]
  3. LEVOTHYROXINE SODIUM [Concomitant]
  4. BROMAZEPAM [Concomitant]

REACTIONS (4)
  - ARTHRALGIA [None]
  - GRANULOCYTOPENIA [None]
  - INFLAMMATION [None]
  - PYREXIA [None]
